APPROVED DRUG PRODUCT: LEUCOVORIN CALCIUM
Active Ingredient: LEUCOVORIN CALCIUM
Strength: EQ 25MG BASE
Dosage Form/Route: TABLET;ORAL
Application: A071598 | Product #001
Applicant: PAR PHARMACEUTICAL INC
Approved: Oct 14, 1987 | RLD: No | RS: No | Type: DISCN